FAERS Safety Report 23082509 (Version 1)
Quarter: 2023Q4

REPORT INFORMATION
  Report Type: Report from Study
  Country: CA (occurrence: CA)
  Receive Date: 20231019
  Receipt Date: 20231019
  Transmission Date: 20240110
  Serious: Yes (Other)
  Sender: FDA-Public Use
  Company Number: CA-CELLTRION INC.-2023CA019866

PATIENT

DRUGS (1)
  1. ADALIMUMAB [Suspect]
     Active Substance: ADALIMUMAB\ISOPROPYL ALCOHOL
     Indication: Hidradenitis
     Dosage: 40.0 MILLIGRAM, 1 EVERY 7 DAY
     Route: 058

REACTIONS (11)
  - Diabetes mellitus [Unknown]
  - Blood cholesterol increased [Unknown]
  - Breast discharge [Unknown]
  - Neck pain [Unknown]
  - Unevaluable event [Unknown]
  - Vulvar erosion [Unknown]
  - Hepatic steatosis [Unknown]
  - Blood pressure increased [Unknown]
  - Cholelithiasis [Unknown]
  - Chest pain [Unknown]
  - Drug ineffective [Unknown]
